FAERS Safety Report 7753772-2 (Version None)
Quarter: 2011Q3

REPORT INFORMATION
  Report Type: 
  Country: None (occurrence: None)
  Receive Date: 20110913
  Receipt Date: 20110831
  Transmission Date: 20111222
  Serious: Yes (Hospitalization, Other)
  Sender: FDA-Public Use
  Company Number: 2011SP039126

PATIENT
  Age: 61 Year
  Sex: Male
  Weight: 47 kg

DRUGS (7)
  1. TEGRETOL [Concomitant]
  2. SULFAMETHOXAZOLE AND TRIMETHOPRIM [Suspect]
     Indication: PROPHYLAXIS
     Dosage: QD;PO
     Route: 048
     Dates: start: 20110519, end: 20110628
  3. SULFAMETHOXAZOLE AND TRIMETHOPRIM [Suspect]
     Indication: PNEUMOCYSTIS JIROVECI PNEUMONIA
     Dosage: QD;PO
     Route: 048
     Dates: start: 20110519, end: 20110628
  4. PRIMPERAN TAB [Concomitant]
  5. ZONISAMIDE [Concomitant]
  6. TEMODAL [Suspect]
     Indication: GLIOBLASTOMA MULTIFORME
     Dosage: 140 MG;QD;PO
     Route: 048
     Dates: start: 20110519, end: 20110629
  7. MOTILIUM [Concomitant]

REACTIONS (6)
  - HERPES SIMPLEX [None]
  - STEVENS-JOHNSON SYNDROME [None]
  - VISUAL ACUITY REDUCED [None]
  - PANCYTOPENIA [None]
  - MYCOPLASMA INFECTION [None]
  - LIVER DISORDER [None]
